FAERS Safety Report 7138221-X (Version None)
Quarter: 2010Q4

REPORT INFORMATION
  Report Type: 
  Country: None (occurrence: None)
  Receive Date: 20101202
  Receipt Date: 20101202
  Transmission Date: 20110411
  Serious: No
  Sender: FDA-Public Use
  Company Number: None

PATIENT
  Age: 79 Year
  Sex: Male

DRUGS (6)
  1. REVLIMID [Suspect]
     Indication: MYELOPROLIFERATIVE DISORDER
     Dosage: 5MG DAILY ORALLY
     Route: 048
     Dates: start: 20100201, end: 20100517
  2. ALLOPURINOL [Concomitant]
  3. FAMOTIDINE [Concomitant]
  4. ATENOLOL [Concomitant]
  5. TERAZOSIN HCL [Concomitant]
  6. TAMSULOSIN [Concomitant]

REACTIONS (3)
  - OEDEMA PERIPHERAL [None]
  - RASH [None]
  - WEIGHT INCREASED [None]
